FAERS Safety Report 7082639-0 (Version None)
Quarter: 2010Q4

REPORT INFORMATION
  Report Type: 
  Country: None (occurrence: None)
  Receive Date: 20101026
  Receipt Date: 20101008
  Transmission Date: 20110411
  Serious: Yes (Hospitalization, Other)
  Sender: FDA-Public Use
  Company Number: 20090325

PATIENT
  Age: 36 Year
  Sex: Female
  Weight: 73 kg

DRUGS (7)
  1. VENOFER [Suspect]
     Dosage: 300 MG X 2 DOSES
     Dates: start: 20090710, end: 20090712
  2. KETOPROFEN [Suspect]
     Dosage: INTRAVENOUS
     Route: 042
     Dates: start: 20090710
  3. NEXIUM [Concomitant]
  4. LOVENOX [Concomitant]
  5. NUBAIN (NALBUPHNIE) [Concomitant]
  6. TARDYFERON [Concomitant]
  7. PERFALGAN(PARACETAMOL) [Suspect]
     Dosage: INTRAVENOUS
     Route: 042
     Dates: start: 20080710

REACTIONS (3)
  - INJECTION SITE OEDEMA [None]
  - INJECTION SITE PAIN [None]
  - THROMBOPHLEBITIS SUPERFICIAL [None]
